FAERS Safety Report 7002140-X (Version None)
Quarter: 2010Q3

REPORT INFORMATION
  Report Type: 
  Country: None (occurrence: None)
  Receive Date: 20100920
  Receipt Date: 20100304
  Transmission Date: 20110219
  Serious: No
  Sender: FDA-Public Use
  Company Number: US-ASTRAZENECA-2010SE09724

PATIENT
  Sex: Female

DRUGS (3)
  1. SEROQUEL [Suspect]
     Indication: ANGER
     Route: 048
  2. THORAZINE [Interacting]
  3. THORAZINE [Interacting]

REACTIONS (5)
  - DRUG DOSE OMISSION [None]
  - FEELING ABNORMAL [None]
  - NAUSEA [None]
  - NEPHROLITHIASIS [None]
  - POLLAKIURIA [None]
